FAERS Safety Report 5801170-0 (Version None)
Quarter: 2008Q3

REPORT INFORMATION
  Report Type: 
  Country: None (occurrence: None)
  Receive Date: 20080707
  Receipt Date: 20080625
  Transmission Date: 20090109
  Serious: Yes (Life-Threatening, Hospitalization, Other)
  Sender: FDA-Public Use
  Company Number: US-ELI_LILLY_AND_COMPANY-US200603004246

PATIENT
  Sex: Female
  Weight: 72.562 kg

DRUGS (10)
  1. ZYPREXA [Suspect]
     Indication: ANXIETY
     Dosage: UNK, UNK
     Dates: start: 20030101, end: 20030401
  2. SEROQUEL [Interacting]
     Dates: start: 20030101
  3. CORTICOSTEROIDS [Concomitant]
  4. POTASSIUM CHLORIDE [Concomitant]
  5. LASIX [Concomitant]
  6. SINGULAIR [Concomitant]
  7. OXYCONTIN [Concomitant]
     Indication: BACK PAIN
  8. VICODIN [Concomitant]
  9. XANAX [Concomitant]
  10. AMBIEN [Concomitant]

REACTIONS (6)
  - CARDIAC ARREST [None]
  - CEREBRAL HAEMORRHAGE [None]
  - CONVULSION [None]
  - DIABETIC COMA [None]
  - DRUG INTERACTION [None]
  - TYPE 2 DIABETES MELLITUS [None]
